FAERS Safety Report 21271500 (Version 1)
Quarter: 2022Q3

REPORT INFORMATION
  Report Type: Other
  Country: PH (occurrence: None)
  Receive Date: 20220830
  Receipt Date: 20220830
  Transmission Date: 20221027
  Serious: Yes (Hospitalization)
  Sender: FDA-Public Use
  Company Number: PH-ROCHE-3168917

PATIENT
  Age: 77 Year
  Sex: Female

DRUGS (1)
  1. TECENTRIQ [Suspect]
     Active Substance: ATEZOLIZUMAB
     Indication: Non-small cell lung cancer metastatic
     Dosage: 1200MG 1VIAL ;ONGOING: YES
     Route: 042

REACTIONS (2)
  - Infection [Recovering/Resolving]
  - Platelet count decreased [Recovering/Resolving]
